FAERS Safety Report 7537654-7 (Version None)
Quarter: 2011Q2

REPORT INFORMATION
  Report Type: 
  Country: None (occurrence: None)
  Receive Date: 20110609
  Receipt Date: 20070802
  Transmission Date: 20111010
  Serious: Yes (Life-Threatening, Hospitalization, Other)
  Sender: FDA-Public Use
  Company Number: PHEH2007US10113

PATIENT
  Sex: Female
  Weight: 48.027 kg

DRUGS (13)
  1. ACTOS [Concomitant]
     Indication: TYPE 2 DIABETES MELLITUS
     Dosage: 15 MG, QD
     Dates: end: 20070801
  2. METFORMIN HYDROCHLORIDE [Concomitant]
     Indication: TYPE 2 DIABETES MELLITUS
     Dosage: 1000MG QAM, 800MG Q AFTERNOON, 1000MG QPM
     Route: 048
  3. LANTUS [Concomitant]
     Indication: TYPE 2 DIABETES MELLITUS
     Dosage: 59 U, QHS
     Route: 058
  4. LEVOTHROID [Concomitant]
     Dosage: 88 MEQ, QD
     Route: 048
  5. LISINOPRIL [Concomitant]
     Indication: HYPERTENSION
     Dosage: 20 MG, UNK
     Dates: start: 20070621
  6. NEXIUM [Concomitant]
     Indication: GASTROOESOPHAGEAL REFLUX DISEASE
     Dosage: 40 MG, QD
     Route: 048
     Dates: end: 20070801
  7. ALLERGY [Concomitant]
     Indication: RHINITIS ALLERGIC
     Dosage: 180 MG, QD
     Route: 048
  8. ASPIRIN [Concomitant]
     Indication: PROPHYLAXIS
     Dosage: 81 MG, QD
     Route: 048
     Dates: start: 20070621
  9. DIOVAN [Suspect]
     Indication: HYPERTENSION
     Dosage: 80 MG, QD
     Route: 048
     Dates: start: 20070423
  10. CALCIUM CARBONATE [Concomitant]
     Indication: OSTEOPOROSIS
     Dosage: 1200 MG, QD
     Route: 048
  11. PRAVASTATIN [Concomitant]
     Indication: DYSLIPIDAEMIA
     Dosage: 40 MG, QD
     Route: 048
     Dates: start: 20070621, end: 20070801
  12. PLAVIX [Concomitant]
     Indication: DIABETES MELLITUS
     Dosage: 75 MG, QD
     Route: 048
     Dates: start: 20070629
  13. ENABLEX [Concomitant]
     Dosage: 15 MG, QD
     Route: 048

REACTIONS (9)
  - NUCLEAR MAGNETIC RESONANCE IMAGING BRAIN ABNORMAL [None]
  - HEMIPLEGIA [None]
  - BRAIN SCAN ABNORMAL [None]
  - GRIP STRENGTH DECREASED [None]
  - CEREBRAL ARTERY EMBOLISM [None]
  - CEREBROVASCULAR ACCIDENT [None]
  - DYSARTHRIA [None]
  - ABASIA [None]
  - PITUITARY CYST [None]
